FAERS Safety Report 18688597 (Version 1)
Quarter: 2020Q4

REPORT INFORMATION
  Report Type: Spontaneous
  Country: US (occurrence: US)
  Receive Date: 20201231
  Receipt Date: 20201231
  Transmission Date: 20210114
  Serious: Yes (Death, Hospitalization, Other)
  Sender: FDA-Public Use
  Company Number: None

PATIENT
  Age: 70 Year
  Sex: Male
  Weight: 100 kg

DRUGS (4)
  1. REMDESIVIR. [Concomitant]
     Active Substance: REMDESIVIR
     Dates: start: 20201216, end: 20201220
  2. PIPERCILLIN-TAZOBACTAM [Concomitant]
     Active Substance: PIPERACILLIN SODIUM\TAZOBACTAM SODIUM
     Dates: start: 20201221, end: 20201228
  3. DECADRON [Concomitant]
     Active Substance: DEXAMETHASONE
     Dates: start: 20201216, end: 20201229
  4. BARICITINIB. [Suspect]
     Active Substance: BARICITINIB
     Indication: COVID-19
     Route: 048
     Dates: start: 20201219, end: 20201229

REACTIONS (3)
  - Pneumothorax [None]
  - Condition aggravated [None]
  - Intentional product use issue [None]

NARRATIVE: CASE EVENT DATE: 20201229
